FAERS Safety Report 8529389-9 (Version None)
Quarter: 2012Q2

REPORT INFORMATION
  Report Type: 
  Country: None (occurrence: None)
  Receive Date: 20120409
  Receipt Date: 20120217
  Transmission Date: 20120825
  Serious: Yes (Death)
  Sender: FDA-Public Use
  Company Number: 2011-546

PATIENT
  Age: 69 Year
  Sex: Female
  Weight: 55.3 kg

DRUGS (2)
  1. GENERLAC (LACTULOSE) [Concomitant]
  2. FAZACLO ODT [Suspect]
     Indication: PSYCHOTIC DISORDER DUE TO A GENERAL MEDICAL CONDITION
     Dosage: 250 MG, QD, ORAL
     Route: 048
     Dates: start: 20060214, end: 20111208

REACTIONS (1)
  - INTESTINAL OBSTRUCTION [None]
